FAERS Safety Report 10087161 (Version 1)
Quarter: 2014Q2

REPORT INFORMATION
  Report Type: Report from Study
  Country: BR (occurrence: BR)
  Receive Date: 20140418
  Receipt Date: 20140418
  Transmission Date: 20141212
  Serious: Yes (Other)
  Sender: FDA-Public Use
  Company Number: PHHY2014BR045820

PATIENT
  Sex: Female
  Weight: 74 kg

DRUGS (4)
  1. SANDOSTATIN LAR [Suspect]
     Indication: HEAD DISCOMFORT
     Dosage: 1 DF, QMO
     Dates: start: 2008
  2. SANDOSTATIN LAR [Suspect]
     Indication: OFF LABEL USE
  3. PARACETAMOL [Suspect]
     Indication: HEADACHE
     Dosage: 3 DF, DAILY
  4. PURAN T4 [Suspect]
     Indication: THYROID DISORDER
     Dosage: 1 DF, DAILY

REACTIONS (3)
  - Neoplasm [Unknown]
  - Hypothalamo-pituitary disorder [Unknown]
  - Headache [Not Recovered/Not Resolved]
